FAERS Safety Report 4366235-1 (Version None)
Quarter: 2004Q2

REPORT INFORMATION
  Report Type: 
  Country: None (occurrence: None)
  Receive Date: 20040527
  Receipt Date: 20040430
  Transmission Date: 20050107
  Serious: No
  Sender: FDA-Public Use
  Company Number: US-BRISTOL-MYERS SQUIBB COMPANY-12577169

PATIENT
  Age: 65 Year
  Sex: Male
  Weight: 151 kg

DRUGS (1)
  1. DEFINITY [Suspect]
     Dosage: 3 CC
     Dates: start: 20040430

REACTIONS (1)
  - INJECTION SITE REACTION [None]
